FAERS Safety Report 5096055-4 (Version None)
Quarter: 2006Q3

REPORT INFORMATION
  Report Type: 
  Country: None (occurrence: None)
  Receive Date: 20060731
  Receipt Date: 20060513
  Transmission Date: 20061208
  Serious: No
  Sender: FDA-Public Use
  Company Number: 2006PV013755

PATIENT
  Age: 56 Year
  Sex: Male
  Weight: 84.369 kg

DRUGS (9)
  1. BYETTA [Suspect]
     Dosage: SEE IMAGE
     Route: 058
     Dates: start: 20051201, end: 20060101
  2. BYETTA [Suspect]
     Dosage: SEE IMAGE
     Route: 058
     Dates: start: 20060101
  3. METFORMIN HCL [Concomitant]
  4. METFORMIN HCL [Concomitant]
  5. AMARYL [Concomitant]
  6. QUINOPRIL [Concomitant]
  7. NORVASC [Concomitant]
  8. LOPRESSOR [Concomitant]
  9. HYDROCHLOROTHIAZIDE [Concomitant]

REACTIONS (5)
  - DECREASED APPETITE [None]
  - DIZZINESS [None]
  - INJECTION SITE PAIN [None]
  - NAUSEA [None]
  - WEIGHT DECREASED [None]
